FAERS Safety Report 18384196 (Version 3)
Quarter: 2021Q2

REPORT INFORMATION
  Report Type: Spontaneous
  Country: US (occurrence: US)
  Receive Date: 20201014
  Receipt Date: 20210412
  Transmission Date: 20210717
  Serious: No
  Sender: FDA-Public Use
  Company Number: US-INTRA-CELLULAR THERAPIES, INC.-2020ICT00101

PATIENT
  Sex: Female
  Weight: 72.56 kg

DRUGS (7)
  1. CAPLYTA [Suspect]
     Active Substance: LUMATEPERONE
     Indication: AUTISM SPECTRUM DISORDER
  2. ZYPREXA ZYDIS [Suspect]
     Active Substance: OLANZAPINE
     Indication: AUTISM SPECTRUM DISORDER
  3. DEPAKOTE [Suspect]
     Active Substance: DIVALPROEX SODIUM
     Indication: SCHIZOPHRENIA
     Dosage: 125 MG, 5X/DAY IN APPLESAUCE
     Dates: start: 2010
  4. CAPLYTA [Suspect]
     Active Substance: LUMATEPERONE
     Indication: SCHIZOPHRENIA
     Dosage: 42 MG, 1X/DAY
     Route: 048
     Dates: start: 20200729, end: 2020
  5. DEPAKOTE [Suspect]
     Active Substance: DIVALPROEX SODIUM
     Indication: AUTISM SPECTRUM DISORDER
  6. ZYPREXA ZYDIS [Suspect]
     Active Substance: OLANZAPINE
     Indication: SCHIZOPHRENIA
     Dosage: UNK AT HS
     Dates: start: 2016
  7. REXULTI [Concomitant]
     Active Substance: BREXPIPRAZOLE
     Dosage: 1.5 MG, 1X/DAY

REACTIONS (7)
  - Diarrhoea [Recovered/Resolved]
  - Inappropriate antidiuretic hormone secretion [Recovered/Resolved]
  - Hyponatraemia [Recovered/Resolved]
  - Weight increased [Not Recovered/Not Resolved]
  - Polyuria [Recovered/Resolved]
  - Pollakiuria [Recovered/Resolved]
  - Urine output increased [Unknown]

NARRATIVE: CASE EVENT DATE: 2020
